FAERS Safety Report 20454935 (Version 1)
Quarter: 2022Q1

REPORT INFORMATION
  Report Type: Spontaneous
  Country: US (occurrence: None)
  Receive Date: 20220209
  Receipt Date: 20220209
  Transmission Date: 20220423
  Serious: Yes (Life-Threatening, Hospitalization, Other)
  Sender: FDA-Public Use
  Company Number: None

PATIENT
  Age: 6 Week
  Sex: Female

DRUGS (1)
  1. INDERAL [Suspect]
     Active Substance: PROPRANOLOL HYDROCHLORIDE
     Indication: Haemangioma
     Dosage: OTHER QUANTITY : .02 ML;?FREQUENCY : EVERY 8 HOURS;?
     Route: 048
     Dates: start: 20220202, end: 20220205

REACTIONS (7)
  - Lethargy [None]
  - Feeling cold [None]
  - Body temperature decreased [None]
  - Blood pressure decreased [None]
  - Depressed level of consciousness [None]
  - Product dispensing error [None]
  - Incorrect dose administered [None]

NARRATIVE: CASE EVENT DATE: 20220205
